FAERS Safety Report 15507832 (Version 1)
Quarter: 2018Q4

REPORT INFORMATION
  Report Type: Spontaneous
  Country: US (occurrence: US)
  Receive Date: 20181016
  Receipt Date: 20181016
  Transmission Date: 20190205
  Serious: No
  Sender: FDA-Public Use
  Company Number: US-BAYER-2018-190390

PATIENT
  Age: 54 Year
  Sex: Female
  Weight: 74 kg

DRUGS (1)
  1. CLOROTRIMETON [Suspect]
     Active Substance: CHLORPHENIRAMINE MALEATE
     Dosage: UNK
     Route: 048

REACTIONS (1)
  - Drug hypersensitivity [Unknown]

NARRATIVE: CASE EVENT DATE: 20101016
